FAERS Safety Report 14999035 (Version 1)
Quarter: 2018Q2

REPORT INFORMATION
  Report Type: Spontaneous
  Country: US (occurrence: US)
  Receive Date: 20180612
  Receipt Date: 20180612
  Transmission Date: 20180711
  Serious: No
  Sender: FDA-Public Use
  Company Number: US-ASTRAZENECA-2018SE73014

PATIENT
  Age: 48 Year
  Sex: Female

DRUGS (2)
  1. ZOMIG [Suspect]
     Active Substance: ZOLMITRIPTAN
     Indication: MIGRAINE
     Dosage: 2.5MG AS REQUIRED
     Route: 048
     Dates: start: 2018
  2. SUPPLEMENT FOR THE EYES [Concomitant]

REACTIONS (3)
  - Fatigue [Recovered/Resolved]
  - Pain [Recovered/Resolved]
  - Rash pruritic [Not Recovered/Not Resolved]
